FAERS Safety Report 16117846 (Version 1)
Quarter: 2019Q1

REPORT INFORMATION
  Report Type: Spontaneous
  Country: US (occurrence: US)
  Receive Date: 20190221
  Receipt Date: 20190221
  Transmission Date: 20190418
  Serious: No
  Sender: FDA-Public Use
  Company Number: None

PATIENT
  Age: 40 Year
  Sex: Female

DRUGS (16)
  1. SILDENAFIL. [Concomitant]
     Active Substance: SILDENAFIL
  2. QVAR [Concomitant]
     Active Substance: BECLOMETHASONE DIPROPIONATE
  3. AYGESTIN [Concomitant]
     Active Substance: NORETHINDRONE ACETATE
  4. LETAIRIS [Suspect]
     Active Substance: AMBRISENTAN
     Indication: PULMONARY ARTERIAL HYPERTENSION
     Route: 048
     Dates: start: 201707
  5. CYCLOBENZAPRINE. [Concomitant]
     Active Substance: CYCLOBENZAPRINE
  6. ALBUTEROL HPA [Concomitant]
  7. PROVERA [Concomitant]
     Active Substance: MEDROXYPROGESTERONE ACETATE
  8. NORCO [Concomitant]
     Active Substance: ACETAMINOPHEN\HYDROCODONE BITARTRATE
  9. SIMVASTATIN. [Concomitant]
     Active Substance: SIMVASTATIN
  10. GUAIFENESIN AC [Concomitant]
     Active Substance: CODEINE PHOSPHATE\GUAIFENESIN
  11. HYDRODODONE [Concomitant]
  12. RENVALA [Concomitant]
  13. CALCITRIOL. [Concomitant]
     Active Substance: CALCITRIOL
  14. ASPIRIN. [Concomitant]
     Active Substance: ASPIRIN
  15. LUPRON DEPOT [Concomitant]
     Active Substance: LEUPROLIDE ACETATE
  16. TRAZODONE [Concomitant]
     Active Substance: TRAZODONE HYDROCHLORIDE

REACTIONS (2)
  - Vaginal haemorrhage [None]
  - Hypotension [None]

NARRATIVE: CASE EVENT DATE: 20190129
